FAERS Safety Report 16830349 (Version 1)
Quarter: 2019Q3

REPORT INFORMATION
  Report Type: Spontaneous
  Country: CN (occurrence: CN)
  Receive Date: 20190920
  Receipt Date: 20190920
  Transmission Date: 20191005
  Serious: Yes (Other)
  Sender: FDA-Public Use
  Company Number: CN-ROCHE-2406605

PATIENT
  Age: 65 Year
  Sex: Male

DRUGS (2)
  1. XELODA [Suspect]
     Active Substance: CAPECITABINE
     Indication: GASTROINTESTINAL CANCER METASTATIC
     Dosage: XELOX CHEMOTHERAPY REGIMEN
     Route: 048
     Dates: start: 20181212
  2. OXALIPLATIN. [Concomitant]
     Active Substance: OXALIPLATIN
     Indication: GASTROINTESTINAL CANCER METASTATIC
     Dosage: XELOX CHEMOTHERAPY REGIMEN
     Route: 065
     Dates: start: 20181212

REACTIONS (3)
  - Neuropathy peripheral [Not Recovered/Not Resolved]
  - Bone marrow failure [Not Recovered/Not Resolved]
  - Drug-induced liver injury [Not Recovered/Not Resolved]

NARRATIVE: CASE EVENT DATE: 201901
